FAERS Safety Report 16906493 (Version 2)
Quarter: 2019Q4

REPORT INFORMATION
  Report Type: Spontaneous
  Country: US (occurrence: US)
  Receive Date: 20191011
  Receipt Date: 20191025
  Transmission Date: 20200122
  Serious: No
  Sender: FDA-Public Use
  Company Number: US-ALEMBIC PHARMACUETICALS LIMITED-2019SCAL000740

PATIENT

DRUGS (1)
  1. PREGABALIN. [Suspect]
     Active Substance: PREGABALIN
     Indication: DIABETIC NEUROPATHY
     Dosage: 300 MILLIGRAM, BID
     Route: 048
     Dates: start: 201908

REACTIONS (3)
  - Drug ineffective [Unknown]
  - Arthritis [Not Recovered/Not Resolved]
  - Product substitution issue [Unknown]
